FAERS Safety Report 14692376 (Version 1)
Quarter: 2018Q1

REPORT INFORMATION
  Report Type: Spontaneous
  Country: US (occurrence: US)
  Receive Date: 20180329
  Receipt Date: 20180329
  Transmission Date: 20180509
  Serious: No
  Sender: FDA-Public Use
  Company Number: US-ASTRAZENECA-2018SE37569

PATIENT
  Sex: Male

DRUGS (2)
  1. MS CONTIN [Concomitant]
     Active Substance: MORPHINE SULFATE
     Dosage: 30.0MG UNKNOWN
  2. MOVANTIK [Suspect]
     Active Substance: NALOXEGOL OXALATE
     Route: 048

REACTIONS (9)
  - Vomiting [Unknown]
  - Abdominal pain [Unknown]
  - Pain [Unknown]
  - Hyperhidrosis [Unknown]
  - Feeling hot [Unknown]
  - Faeces discoloured [Unknown]
  - Chills [Unknown]
  - Diarrhoea [Unknown]
  - Headache [Unknown]
